FAERS Safety Report 20315129 (Version 1)
Quarter: 2022Q1

REPORT INFORMATION
  Report Type: Other
  Country: US (occurrence: None)
  Receive Date: 20220110
  Receipt Date: 20220110
  Transmission Date: 20220423
  Serious: Yes (Other)
  Sender: FDA-Public Use
  Company Number: US-ROCHE-2720916

PATIENT
  Age: 87 Year
  Sex: Male

DRUGS (2)
  1. RITUXIMAB [Suspect]
     Active Substance: RITUXIMAB
     Indication: Small intestinal obstruction
     Dosage: 2 DOSES OF TARGETED THERAPY OVER THE COURSE OF 10 DAYS.
     Route: 065
  2. SOLU-MEDROL [Suspect]
     Active Substance: METHYLPREDNISOLONE SODIUM SUCCINATE
     Indication: Small intestinal obstruction
     Route: 065

REACTIONS (1)
  - Cellulitis [Unknown]
